FAERS Safety Report 24645953 (Version 2)
Quarter: 2024Q4

REPORT INFORMATION
  Report Type: Spontaneous
  Country: US (occurrence: US)
  Receive Date: 20241121
  Receipt Date: 20241129
  Transmission Date: 20250114
  Serious: Yes (Hospitalization)
  Sender: GERON CORP
  Company Number: US-GERON-INTAKE-US-2013-2024

PATIENT
  Age: 75 Year
  Sex: Male

DRUGS (3)
  1. RYTELO [Suspect]
     Active Substance: IMETELSTAT SODIUM
     Indication: Myelodysplastic syndrome
     Dosage: AT THE USUAL DOSE, FIRST CYCLE UNK
     Route: 042
     Dates: start: 20240918
  2. RYTELO [Suspect]
     Active Substance: IMETELSTAT SODIUM
     Dosage: SECOND CYCLE, LAST DOSE, UNK
     Route: 042
     Dates: start: 20241016
  3. ELIQUIS [Concomitant]
     Active Substance: APIXABAN
     Indication: Atrial fibrillation
     Dosage: UNK, UNK

REACTIONS (13)
  - Escherichia bacteraemia [Unknown]
  - Failure to thrive [Unknown]
  - Hypercalcaemia [Unknown]
  - Disease progression [Unknown]
  - Altered state of consciousness [Unknown]
  - Proctitis [Unknown]
  - Sepsis [Unknown]
  - Fatigue [Unknown]
  - Hypersensitivity [Unknown]
  - Cytopenia [Unknown]
  - Weight decreased [Unknown]
  - Iron overload [Unknown]
  - Decreased appetite [Unknown]

NARRATIVE: CASE EVENT DATE: 20240101
